FAERS Safety Report 19004946 (Version 2)
Quarter: 2021Q1

REPORT INFORMATION
  Report Type: Spontaneous
  Country: JP (occurrence: JP)
  Receive Date: 20210313
  Receipt Date: 20210323
  Transmission Date: 20210420
  Serious: Yes (Hospitalization, Other)
  Sender: FDA-Public Use
  Company Number: JP-SA-2021SA084187

PATIENT
  Age: 93 Year
  Sex: Female

DRUGS (21)
  1. LANSOPRAZOLE. [Concomitant]
     Active Substance: LANSOPRAZOLE
     Dosage: UNK
  2. REFLEX [Concomitant]
     Active Substance: MIRTAZAPINE
     Dosage: UNK
  3. MAGMITT [Concomitant]
     Active Substance: MAGNESIUM OXIDE
     Dosage: UNK
  4. BELSOMRA [Concomitant]
     Active Substance: SUVOREXANT
     Dosage: UNK
  5. MYSLEE [Concomitant]
     Active Substance: ZOLPIDEM TARTRATE
     Dosage: UNK
  6. REXULTI [Concomitant]
     Active Substance: BREXPIPRAZOLE
  7. NAUZELIN [Concomitant]
     Active Substance: DOMPERIDONE
     Dosage: UNK
  8. MOVICOL [Concomitant]
     Active Substance: POLYETHYLENE GLYCOL 3350\POTASSIUM CHLORIDE\SODIUM BICARBONATE\SODIUM CHLORIDE
     Dosage: UNK
  9. XYZALL [Suspect]
     Active Substance: LEVOCETIRIZINE DIHYDROCHLORIDE
     Indication: PRURITUS
     Dosage: UNK
     Route: 048
     Dates: start: 20181107
  10. TETRAMIDE [Concomitant]
     Active Substance: MIANSERIN
     Dosage: UNK
  11. TAKECAB [Concomitant]
     Active Substance: VONOPRAZAN FUMARATE
     Dosage: UNK
  12. MAGNESIUM OXIDE. [Concomitant]
     Active Substance: MAGNESIUM OXIDE
  13. FIRSTCIN [Concomitant]
     Active Substance: CEFOZOPRAN HYDROCHLORIDE
     Dosage: UNK
  14. MOVICOL [MACROGOL 4000;POTASSIUM CHLORIDE;SODIUM BICARBONATE;SODIUM CH [Concomitant]
     Dosage: UNK
  15. MICOMBI COMBINATION [Concomitant]
     Active Substance: HYDROCHLOROTHIAZIDE\TELMISARTAN
     Dosage: UNK
  16. AMLODIN [Concomitant]
     Active Substance: AMLODIPINE BESYLATE
     Dosage: UNK
  17. ALLEGRA [Concomitant]
     Active Substance: FEXOFENADINE HYDROCHLORIDE
  18. MEMARY [Concomitant]
     Active Substance: MEMANTINE HYDROCHLORIDE
     Dosage: UNK
  19. RHYTHMY [Concomitant]
     Active Substance: RILMAZAFONE HYDROCHLORIDE
     Dosage: UNK
  20. XOFLUZA [Concomitant]
     Active Substance: BALOXAVIR MARBOXIL
     Dosage: UNK
  21. ARICEPT [Concomitant]
     Active Substance: DONEPEZIL HYDROCHLORIDE
     Dosage: UNK

REACTIONS (12)
  - Hallucination [Unknown]
  - Nephrogenic anaemia [Unknown]
  - Sinus tachycardia [Unknown]
  - Pneumonia [Unknown]
  - Dementia [Unknown]
  - Dyspnoea exertional [Unknown]
  - Oedema [Unknown]
  - Vomiting [Unknown]
  - Lacunar infarction [Not Recovered/Not Resolved]
  - Eating disorder [Unknown]
  - Hepatic cyst [Unknown]
  - Faeces soft [Unknown]

NARRATIVE: CASE EVENT DATE: 20190207
